FAERS Safety Report 24066710 (Version 1)
Quarter: 2024Q3

REPORT INFORMATION
  Report Type: Spontaneous
  Country: US (occurrence: None)
  Receive Date: 20240709
  Receipt Date: 20240709
  Transmission Date: 20241017
  Serious: Yes (Hospitalization)
  Sender: Public
  Company Number: None

PATIENT
  Sex: Female

DRUGS (3)
  1. TETRABENAZINE [Suspect]
     Active Substance: TETRABENAZINE
     Indication: Dyskinesia
     Dosage: OTHER QUANTITY : TAKE 1 TABLET;?FREQUENCY : 3 TIMES A DAY;?
     Route: 048
     Dates: start: 20230525
  2. EMGALITY [Concomitant]
     Active Substance: GALCANEZUMAB-GNLM
  3. NURTEC ODT [Concomitant]
     Active Substance: RIMEGEPANT SULFATE

REACTIONS (2)
  - Hospitalisation [None]
  - Therapy interrupted [None]
